FAERS Safety Report 9727442 (Version 1)
Quarter: 2013Q4

REPORT INFORMATION
  Report Type: Spontaneous
  Country: DK (occurrence: FR)
  Receive Date: 20131203
  Receipt Date: 20131203
  Transmission Date: 20140711
  Serious: Yes (Hospitalization)
  Sender: FDA-Public Use
  Company Number: FR-FRI-1000051811

PATIENT
  Age: 91 Year
  Sex: Female

DRUGS (17)
  1. CITALOPRAM [Suspect]
     Indication: FEEDING DISORDER
     Dates: start: 201308, end: 201308
  2. RIFADINE [Suspect]
     Indication: BONE DISORDER
     Dates: start: 201308, end: 201308
  3. RIFADINE [Suspect]
     Indication: ARTHROPATHY
  4. DALACINE [Suspect]
     Indication: BONE DISORDER
     Dates: start: 201308, end: 201308
  5. DALACINE [Suspect]
     Indication: ARTHROPATHY
  6. PREVISCAN [Concomitant]
     Dates: end: 20130613
  7. PREVISCAN [Concomitant]
     Dates: start: 20130618, end: 20130629
  8. ORBENINE [Concomitant]
     Indication: OSTEOMYELITIS
     Dosage: 6 DF
     Dates: start: 20130616, end: 20130628
  9. ORBENINE [Concomitant]
     Indication: ARTHRITIS INFECTIVE
     Dosage: 3 DF
     Dates: start: 20130629, end: 20130803
  10. IZILOX [Concomitant]
     Indication: OSTEOMYELITIS
     Dosage: 1 DF
     Dates: start: 20130616, end: 20130629
  11. IZILOX [Concomitant]
     Indication: ARTHRITIS INFECTIVE
  12. PYOSTACINE [Concomitant]
     Dosage: 6 DF
     Dates: start: 20130630, end: 20130712
  13. CALCIPARINE [Concomitant]
     Dosage: 0.8 IU
     Dates: start: 20130630
  14. TAVANIC [Concomitant]
     Indication: OSTEOMYELITIS
     Dates: start: 20130803
  15. TAVANIC [Concomitant]
     Indication: ARTHRITIS INFECTIVE
  16. ROCEPHINE [Concomitant]
     Indication: OSTEOMYELITIS
     Dates: start: 20130803
  17. ROCEPHINE [Concomitant]
     Indication: ARTHRITIS INFECTIVE

REACTIONS (4)
  - Thrombocytopenia [Recovered/Resolved]
  - Cholestasis [Recovering/Resolving]
  - Urticaria [Recovered/Resolved]
  - Off label use [Recovered/Resolved]
